FAERS Safety Report 5573198-X (Version None)
Quarter: 2007Q4

REPORT INFORMATION
  Report Type: 
  Country: None (occurrence: None)
  Receive Date: 20071224
  Receipt Date: 20071214
  Transmission Date: 20080405
  Serious: Yes (Hospitalization)
  Sender: FDA-Public Use
  Company Number: US-SANOFI-SYNTHELABO-A03200706808

PATIENT
  Sex: Female
  Weight: 109.3 kg

DRUGS (22)
  1. METFORMIN HCL [Concomitant]
     Indication: DIABETES MELLITUS
     Route: 048
     Dates: start: 20071020
  2. ATIVAN [Concomitant]
     Indication: DRUG USE FOR UNKNOWN INDICATION
     Dosage: 1 TABLET AS NECESSARY
     Route: 048
     Dates: start: 20070726
  3. FLEXERIL [Concomitant]
     Indication: DRUG USE FOR UNKNOWN INDICATION
     Route: 048
     Dates: start: 20070725
  4. HYDROCHLOROTHIAZIDE [Concomitant]
     Indication: DRUG USE FOR UNKNOWN INDICATION
     Route: 048
     Dates: start: 20070725
  5. KYTRIL [Concomitant]
     Indication: DRUG USE FOR UNKNOWN INDICATION
     Route: 048
     Dates: start: 20070725
  6. TYLENOL [Concomitant]
     Indication: DRUG USE FOR UNKNOWN INDICATION
     Route: 048
     Dates: start: 20070912
  7. LOPERAMIDE HCL [Concomitant]
     Indication: DRUG USE FOR UNKNOWN INDICATION
     Route: 048
     Dates: start: 20070725
  8. PHENERGAN HCL [Concomitant]
     Indication: ABDOMINAL PAIN
     Route: 048
     Dates: start: 20070830
  9. LOVENOX [Concomitant]
     Indication: DRUG USE FOR UNKNOWN INDICATION
     Route: 058
     Dates: start: 20070718
  10. ACETAMINOPHEN AND HYDROCODONE BITARTRATE [Concomitant]
     Indication: ABDOMINAL PAIN
     Dosage: 1 AS NECESSARY
     Route: 048
     Dates: start: 20070725
  11. POTASSIUM CHLORIDE [Concomitant]
     Indication: HYPOKALAEMIA
     Route: 048
     Dates: start: 20070724
  12. KLOR-CON [Concomitant]
     Indication: DRUG USE FOR UNKNOWN INDICATION
     Route: 048
     Dates: start: 20070725
  13. FOLINIC ACID [Suspect]
     Route: 042
     Dates: start: 20070709
  14. FLUOROURACIL [Suspect]
     Dosage: EVERY 4-6 HOURS
     Route: 042
     Dates: start: 20070709
  15. COMPAZINE [Concomitant]
     Indication: DRUG USE FOR UNKNOWN INDICATION
     Route: 048
     Dates: start: 20070725
  16. OXALIPLATIN [Suspect]
     Route: 042
     Dates: start: 20070709
  17. DEXAMETHASONE TAB [Suspect]
     Indication: DRUG USE FOR UNKNOWN INDICATION
     Dosage: UNK
     Route: 065
  18. PROCRIT [Suspect]
     Indication: ANAEMIA
     Route: 058
     Dates: start: 20070730, end: 20070910
  19. PROCRIT [Suspect]
     Route: 058
     Dates: start: 20070910, end: 20070910
  20. ZOFRAN [Concomitant]
     Indication: NAUSEA
     Route: 042
     Dates: start: 20071115
  21. MORPHINE [Concomitant]
     Indication: ABDOMINAL PAIN
     Route: 042
     Dates: start: 20071115
  22. INSULIN [Concomitant]
     Indication: DRUG USE FOR UNKNOWN INDICATION
     Route: 058
     Dates: start: 20071115

REACTIONS (12)
  - ABDOMINAL MASS [None]
  - ABDOMINAL PAIN [None]
  - ASTHENIA [None]
  - BLOOD GLUCOSE INCREASED [None]
  - CHILLS [None]
  - DEHYDRATION [None]
  - DIABETIC GASTROPARESIS [None]
  - DIARRHOEA [None]
  - FATIGUE [None]
  - GLYCOSYLATED HAEMOGLOBIN INCREASED [None]
  - VOMITING [None]
  - WEIGHT DECREASED [None]
